FAERS Safety Report 22152133 (Version 1)
Quarter: 2023Q1

REPORT INFORMATION
  Report Type: Spontaneous
  Country: US (occurrence: US)
  Receive Date: 20230329
  Receipt Date: 20230329
  Transmission Date: 20230418
  Serious: No
  Sender: FDA-Public Use
  Company Number: US-BION-010389

PATIENT
  Age: 68 Year
  Sex: Female

DRUGS (1)
  1. ALEVE [Suspect]
     Active Substance: NAPROXEN SODIUM
     Indication: Product used for unknown indication
     Dosage: DOSE: 1 IN THE MORNING 1 IN THE EVENING
     Route: 048
     Dates: start: 20220326, end: 20220328

REACTIONS (1)
  - Tongue discomfort [Recovered/Resolved]

NARRATIVE: CASE EVENT DATE: 20220326
